FAERS Safety Report 14190080 (Version 2)
Quarter: 2018Q3

REPORT INFORMATION
  Report Type: Spontaneous
  Country: US (occurrence: US)
  Receive Date: 20171115
  Receipt Date: 20180807
  Transmission Date: 20181010
  Serious: No
  Sender: FDA-Public Use
  Company Number: US-TARO-2017TAR00853

PATIENT
  Sex: Female
  Weight: 62.59 kg

DRUGS (1)
  1. DICLOFENAC SODIUM GEL 3% [Suspect]
     Active Substance: DICLOFENAC SODIUM

REACTIONS (3)
  - Headache [Unknown]
  - Hypersensitivity [Unknown]
  - Swelling face [Unknown]
